FAERS Safety Report 24721402 (Version 2)
Quarter: 2024Q4

REPORT INFORMATION
  Report Type: Report from Study
  Country: US (occurrence: US)
  Receive Date: 20241211
  Receipt Date: 20241227
  Transmission Date: 20250114
  Serious: Yes (Hospitalization, Other)
  Sender: ABBVIE
  Company Number: US-ABBVIE-6038944

PATIENT
  Age: 48 Year
  Sex: Female
  Weight: 74.842 kg

DRUGS (9)
  1. RINVOQ [Suspect]
     Active Substance: UPADACITINIB
     Indication: Hidradenitis
     Dosage: STRENGTH 15 MILLIGRAM
     Route: 048
     Dates: start: 20200519, end: 20240921
  2. RINVOQ [Suspect]
     Active Substance: UPADACITINIB
     Indication: Hidradenitis
     Dosage: STRENGTH 15 MILLIGRAM
     Route: 048
     Dates: start: 20240927
  3. WEGOVY [Concomitant]
     Active Substance: SEMAGLUTIDE
     Indication: Weight increased
  4. Spironolactone dc (Spironolactone) [Concomitant]
     Indication: Acne
  5. HYDROXYCHLOROQUINE [Concomitant]
     Active Substance: HYDROXYCHLOROQUINE
     Indication: Arthralgia
  6. CLARITIN [Concomitant]
     Active Substance: LORATADINE
     Indication: Hypersensitivity
  7. TYLENOL [Concomitant]
     Active Substance: ACETAMINOPHEN
     Indication: Pain
  8. MONTELUKAST [Concomitant]
     Active Substance: MONTELUKAST SODIUM
     Indication: Asthma
  9. Gabapentin an (Gabapentin) [Concomitant]
     Indication: Neuropathy peripheral

REACTIONS (18)
  - Appendicectomy [Recovered/Resolved]
  - Kidney infection [Recovered/Resolved]
  - Ileus [Recovered/Resolved]
  - Chills [Recovered/Resolved]
  - Vomiting [Recovered/Resolved]
  - Hyperhidrosis [Recovered/Resolved]
  - Sepsis [Recovered/Resolved]
  - Enteritis [Recovered/Resolved]
  - Pain [Recovered/Resolved]
  - Vomiting [Unknown]
  - Basophil count increased [Unknown]
  - Neutrophil count increased [Unknown]
  - Blood ketone body increased [Unknown]
  - Chromaturia [Unknown]
  - Haemoglobin urine present [Unknown]
  - Dysstasia [Recovered/Resolved]
  - Haemoglobin decreased [Unknown]
  - C-reactive protein increased [Unknown]

NARRATIVE: CASE EVENT DATE: 20240101
